FAERS Safety Report 19874743 (Version 1)
Quarter: 2021Q3

REPORT INFORMATION
  Report Type: Report from Study
  Country: US (occurrence: US)
  Receive Date: 20210923
  Receipt Date: 20210923
  Transmission Date: 20211014
  Serious: Yes (Hospitalization, Other)
  Sender: FDA-Public Use
  Company Number: US-VERTEX PHARMACEUTICALS-2021-013941

PATIENT
  Age: 40 Year
  Sex: Female

DRUGS (2)
  1. TRIKAFTA [Suspect]
     Active Substance: ELEXACAFTOR\IVACAFTOR\TEZACAFTOR
     Indication: CYSTIC FIBROSIS
     Dosage: 2 TABLETS AM EVERY OTHER DAY ALTERNATIVE WITH 1 TAB AM ON EVERY OTHER DAY
     Route: 048
     Dates: start: 20200929
  2. FLUCONAZOLE. [Concomitant]
     Active Substance: FLUCONAZOLE

REACTIONS (2)
  - Cholecystitis acute [Recovered/Resolved]
  - Diabetic ketoacidosis [Unknown]

NARRATIVE: CASE EVENT DATE: 20210810
